FAERS Safety Report 4996235-X (Version None)
Quarter: 2006Q2

REPORT INFORMATION
  Report Type: 
  Country: None (occurrence: None)
  Receive Date: 20060505
  Receipt Date: 20060424
  Transmission Date: 20061013
  Serious: No
  Sender: FDA-Public Use
  Company Number: RS005972-CDN

PATIENT
  Age: 64 Year
  Sex: Female

DRUGS (4)
  1. RABEPRAZOLE SODIUM [Suspect]
     Dosage: 30 MG, ORAL
     Route: 048
     Dates: start: 20020101
  2. CLONAZEPAM [Concomitant]
  3. OXAZEPAM [Concomitant]
  4. ELAVIL [Concomitant]

REACTIONS (3)
  - HAEMOPTYSIS [None]
  - OESOPHAGEAL PAIN [None]
  - PHARYNGOLARYNGEAL PAIN [None]
